FAERS Safety Report 6807478-4 (Version None)
Quarter: 2010Q2

REPORT INFORMATION
  Report Type: 
  Country: None (occurrence: None)
  Receive Date: 20100625
  Receipt Date: 20100609
  Transmission Date: 20101027
  Serious: Yes (Other)
  Sender: FDA-Public Use
  Company Number: 008772

PATIENT
  Age: 67 Year
  Sex: Female

DRUGS (5)
  1. PEGAPTANIB SODIUM (PEGAPTANIB SODIUM) UNKNOWN [Suspect]
     Indication: MACULAR DEGENERATION
     Dosage: 1 EVERY 6 WEEKS, 3 MG TREATMENT IN YEAR 1, 0.3 MG TREATMENT IN YEAR 2 AND 3 ACTUAL TREATMENT 0.3 MG
     Dates: start: 20030408
  2. TERAZOSIN HCL [Concomitant]
  3. PANTOPRAZOLE [Concomitant]
  4. ACETYLSALICYLIC ACID [Concomitant]
  5. GLUCOSMINE [Concomitant]

REACTIONS (2)
  - ALPHA HAEMOLYTIC STREPTOCOCCAL INFECTION [None]
  - ENDOPHTHALMITIS [None]
